FAERS Safety Report 9411677 (Version 2)
Quarter: 2013Q3

REPORT INFORMATION
  Report Type: Spontaneous
  Country: US (occurrence: US)
  Receive Date: 20130722
  Receipt Date: 20130808
  Transmission Date: 20140515
  Serious: Yes (Other)
  Sender: FDA-Public Use
  Company Number: US-BAYER-2013-088096

PATIENT
  Age: 39 Year
  Sex: Female
  Weight: 69.39 kg

DRUGS (2)
  1. MIRENA [Suspect]
     Indication: MENORRHAGIA
     Dosage: 20 MCG/24HR, CONT
     Route: 015
     Dates: start: 20130603, end: 20130719
  2. MIRENA [Suspect]
     Indication: CONTRACEPTION

REACTIONS (2)
  - Device dislocation [Recovered/Resolved]
  - Pain [None]
